FAERS Safety Report 10147385 (Version 1)
Quarter: 2014Q2

REPORT INFORMATION
  Report Type: Spontaneous
  Country: US (occurrence: US)
  Receive Date: 20140501
  Receipt Date: 20140501
  Transmission Date: 20141212
  Serious: Yes (Hospitalization, Other)
  Sender: FDA-Public Use
  Company Number: US-GILEAD-2014-0101367

PATIENT
  Age: 63 Year
  Sex: Male

DRUGS (8)
  1. LETAIRIS [Suspect]
     Indication: PULMONARY HYPERTENSION
     Dosage: 10 MG, QD
     Route: 065
     Dates: start: 20130129
  2. OMEPRAZOLE [Concomitant]
  3. CO Q10 [Concomitant]
  4. METFORMIN [Concomitant]
  5. FUROSEMIDE [Concomitant]
  6. LISINOPRIL [Concomitant]
  7. GLYBURIDE [Concomitant]
  8. REVATIO [Concomitant]

REACTIONS (1)
  - Sepsis [Not Recovered/Not Resolved]
